FAERS Safety Report 20090666 (Version 1)
Quarter: 2021Q4

REPORT INFORMATION
  Report Type: Spontaneous
  Country: BE (occurrence: BE)
  Receive Date: 20211119
  Receipt Date: 20211119
  Transmission Date: 20220304
  Serious: Yes (Other)
  Sender: FDA-Public Use
  Company Number: BE-MYLANLABS-2021M1085206

PATIENT
  Sex: Male

DRUGS (12)
  1. VALPROIC ACID [Interacting]
     Active Substance: VALPROIC ACID
     Indication: Severe myoclonic epilepsy of infancy
     Dosage: 19.5 MILLIGRAM/KILOGRAM, QD, INITIAL DOSAGE NOT STATED
     Route: 065
  2. VALPROIC ACID [Interacting]
     Active Substance: VALPROIC ACID
     Dosage: UNK, DOSE DECREASED
     Route: 065
  3. FENFLURAMINE [Interacting]
     Active Substance: FENFLURAMINE
     Indication: Severe myoclonic epilepsy of infancy
     Dosage: 0.12 MILLIGRAM/KILOGRAM, QD
     Route: 065
     Dates: start: 20160913
  4. FENFLURAMINE [Interacting]
     Active Substance: FENFLURAMINE
     Dosage: 0.25 MILLIGRAM/KILOGRAM, QD
     Route: 065
  5. FENFLURAMINE [Interacting]
     Active Substance: FENFLURAMINE
     Dosage: 0.13 MILLIGRAM/KILOGRAM, QD
     Route: 065
  6. FENFLURAMINE [Interacting]
     Active Substance: FENFLURAMINE
     Dosage: 0.27 MILLIGRAM/KILOGRAM, QD
     Route: 065
  7. FENFLURAMINE [Interacting]
     Active Substance: FENFLURAMINE
     Dosage: UNK, LOWERED DOSE
     Route: 065
  8. FENFLURAMINE [Interacting]
     Active Substance: FENFLURAMINE
     Dosage: 0.28 MILLIGRAM/KILOGRAM, QD
     Route: 065
  9. LEVETIRACETAM [Concomitant]
     Active Substance: LEVETIRACETAM
     Indication: Severe myoclonic epilepsy of infancy
     Dosage: UNK
     Route: 065
  10. TOPIRAMATE [Concomitant]
     Active Substance: TOPIRAMATE
     Indication: Severe myoclonic epilepsy of infancy
     Dosage: UNK
     Route: 065
  11. CLOBAZAM [Concomitant]
     Active Substance: CLOBAZAM
     Indication: Severe myoclonic epilepsy of infancy
     Dosage: UNK, INITIAL DOSAGE NOT STATED; 2 X 2 MG
     Route: 065
  12. CARBAMAZEPINE [Concomitant]
     Active Substance: CARBAMAZEPINE
     Indication: Severe myoclonic epilepsy of infancy
     Dosage: UNK
     Route: 065

REACTIONS (3)
  - Thrombocytopenia [Recovering/Resolving]
  - Neutropenia [Recovered/Resolved]
  - Drug interaction [Recovering/Resolving]
